FAERS Safety Report 11113591 (Version 5)
Quarter: 2022Q1

REPORT INFORMATION
  Report Type: Spontaneous
  Country: US (occurrence: US)
  Receive Date: 20150514
  Receipt Date: 20220227
  Transmission Date: 20220424
  Serious: Yes (Other)
  Sender: FDA-Public Use
  Company Number: US-JNJFOC-20150506086

PATIENT
  Age: 15 Year
  Sex: Male

DRUGS (9)
  1. RISPERDAL [Suspect]
     Active Substance: RISPERIDONE
     Indication: Obsessive-compulsive disorder
     Route: 048
     Dates: start: 200106, end: 200109
  2. RISPERDAL [Suspect]
     Active Substance: RISPERIDONE
     Indication: Tourette^s disorder
     Route: 048
     Dates: start: 200111, end: 200112
  3. RISPERDAL [Suspect]
     Active Substance: RISPERIDONE
     Route: 048
     Dates: start: 200201, end: 200205
  4. RISPERDAL [Suspect]
     Active Substance: RISPERIDONE
     Route: 048
     Dates: start: 200207, end: 200210
  5. RISPERDAL [Suspect]
     Active Substance: RISPERIDONE
     Route: 048
     Dates: start: 200308
  6. RISPERDAL [Suspect]
     Active Substance: RISPERIDONE
     Route: 048
     Dates: start: 200310
  7. RISPERDAL [Suspect]
     Active Substance: RISPERIDONE
     Route: 048
     Dates: start: 200312
  8. RISPERDAL [Suspect]
     Active Substance: RISPERIDONE
     Route: 048
     Dates: start: 200507
  9. RISPERDAL [Suspect]
     Active Substance: RISPERIDONE
     Route: 048
     Dates: end: 2005

REACTIONS (3)
  - Gynaecomastia [Unknown]
  - Product use in unapproved indication [Unknown]
  - Off label use [Unknown]

NARRATIVE: CASE EVENT DATE: 20010101
